FAERS Safety Report 17319437 (Version 1)
Quarter: 2020Q1

REPORT INFORMATION
  Report Type: Spontaneous
  Country: US (occurrence: US)
  Receive Date: 20200124
  Receipt Date: 20200124
  Transmission Date: 20200409
  Serious: Yes (Other)
  Sender: FDA-Public Use
  Company Number: US-BAUSCH-BL-2020-001654

PATIENT
  Sex: Female

DRUGS (8)
  1. DUREZOL [Concomitant]
     Active Substance: DIFLUPREDNATE
     Dosage: IN LEFT EYE
     Route: 047
     Dates: start: 20191112, end: 20191121
  2. OFLOXACIN OPHTHALMIC [Suspect]
     Active Substance: OFLOXACIN
     Indication: PRODUCT USE IN UNAPPROVED INDICATION
  3. ILEVRO [Concomitant]
     Active Substance: NEPAFENAC
     Indication: POSTOPERATIVE CARE
     Dosage: AS DIRECTED
     Route: 047
     Dates: start: 20181023
  4. DUREZOL [Concomitant]
     Active Substance: DIFLUPREDNATE
     Indication: POSTOPERATIVE CARE
     Dosage: AS DIRECTED IN RIGHT EYE
     Route: 047
     Dates: start: 20181023
  5. LOTEMAX [Suspect]
     Active Substance: LOTEPREDNOL ETABONATE
     Indication: POSTOPERATIVE CARE
     Route: 047
     Dates: start: 20191121
  6. BESIVANCE [Suspect]
     Active Substance: BESIFLOXACIN
     Indication: PRODUCT USE IN UNAPPROVED INDICATION
     Dosage: AS DIRECTED
     Route: 047
     Dates: start: 20191112
  7. BESIVANCE [Suspect]
     Active Substance: BESIFLOXACIN
     Indication: POSTOPERATIVE CARE
     Dosage: AS DIRECTED
     Route: 047
     Dates: start: 20181023
  8. OFLOXACIN OPHTHALMIC [Suspect]
     Active Substance: OFLOXACIN
     Indication: POSTOPERATIVE CARE
     Dosage: AS DIRECTED
     Route: 047
     Dates: start: 20191112

REACTIONS (4)
  - Eye haemorrhage [Unknown]
  - Conjunctivitis [Unknown]
  - Product use in unapproved indication [Unknown]
  - Pruritus [Not Recovered/Not Resolved]

NARRATIVE: CASE EVENT DATE: 20181023
